FAERS Safety Report 19269802 (Version 1)
Quarter: 2021Q2

REPORT INFORMATION
  Report Type: Spontaneous
  Country: DE (occurrence: DE)
  Receive Date: 20210518
  Receipt Date: 20210518
  Transmission Date: 20210717
  Serious: Yes (Life-Threatening, Hospitalization)
  Sender: FDA-Public Use
  Company Number: DE-ACCORD-225277

PATIENT
  Age: 65 Year
  Sex: Male

DRUGS (5)
  1. ZOFRAN [Concomitant]
     Active Substance: ONDANSETRON HYDROCHLORIDE
     Dosage: 8 MG, AS REQUIRED MAX. 2 X DAILY
  2. MCP [Concomitant]
     Active Substance: METOCLOPRAMIDE HYDROCHLORIDE
     Dosage: 100 MG, AS REQUIRED MAX 3 X DAILY
  3. ETOPOSIDE. [Suspect]
     Active Substance: ETOPOSIDE
     Indication: PRODUCT USED FOR UNKNOWN INDICATION
     Route: 042
     Dates: end: 20201206
  4. CARBOPLATIN. [Suspect]
     Active Substance: CARBOPLATIN
     Indication: PRODUCT USED FOR UNKNOWN INDICATION
     Route: 042
     Dates: end: 20201204
  5. CYANOCOBALAMIN. [Concomitant]
     Active Substance: CYANOCOBALAMIN
     Dosage: 100 UG/EVERY 3 MONTHS, 1?0?0?0
     Route: 030

REACTIONS (7)
  - Syncope [Unknown]
  - Chills [Unknown]
  - Nausea [Unknown]
  - Neutropenia [Unknown]
  - Pulmonary sepsis [Unknown]
  - Dizziness [Unknown]
  - Asthenia [Unknown]
